FAERS Safety Report 6449159-5 (Version None)
Quarter: 2009Q4

REPORT INFORMATION
  Report Type: 
  Country: None (occurrence: None)
  Receive Date: 20091120
  Receipt Date: 20091116
  Transmission Date: 20100525
  Serious: Yes (Life-Threatening, Hospitalization)
  Sender: FDA-Public Use
  Company Number: ZA-MERCK-0911ZAF00013

PATIENT
  Age: 47 Year
  Sex: Female

DRUGS (1)
  1. INVANZ [Suspect]
     Route: 065

REACTIONS (1)
  - ANAPHYLACTIC SHOCK [None]
